FAERS Safety Report 8370025-2 (Version None)
Quarter: 2012Q1

REPORT INFORMATION
  Report Type: 
  Country: None (occurrence: None)
  Receive Date: 20120323
  Receipt Date: 20110621
  Transmission Date: 20120608
  Serious: Yes (Other)
  Sender: FDA-Public Use
  Company Number: 163-21880-11062808

PATIENT
  Age: 63 Year
  Sex: Female
  Weight: 88.4514 kg

DRUGS (18)
  1. REVLIMID [Suspect]
     Indication: MULTIPLE MYELOMA
     Dosage: 15 MG, D1-21, PO
     Route: 048
     Dates: start: 20110506
  2. AMBIEN [Concomitant]
  3. BLOOD (BLOOD AND RELATED PRODUCTS) [Concomitant]
  4. DILAUDID [Concomitant]
  5. PHENERGAN [Concomitant]
  6. SKELAXIN [Concomitant]
  7. DEXAMETHASONE [Concomitant]
  8. VELCADE [Concomitant]
  9. ZOFRAN [Concomitant]
  10. FENTANYL [Concomitant]
  11. VITAMIN B12 [Concomitant]
  12. VALTREX [Concomitant]
  13. XANAX [Concomitant]
  14. TESSALON PEARLS (BENZONATATE) [Concomitant]
  15. EFFEXOR [Concomitant]
  16. NEURONTIN [Concomitant]
  17. HYDROCORTIZONE (HYDROCORTISONE ACETATE) [Concomitant]
  18. POTASSIUIM (POTASSIUM) [Concomitant]

REACTIONS (8)
  - ASTHENIA [None]
  - ADRENAL DISORDER [None]
  - FLUID RETENTION [None]
  - MULTIPLE MYELOMA [None]
  - DYSPNOEA [None]
  - DIZZINESS [None]
  - BACK PAIN [None]
  - NASOPHARYNGITIS [None]
